FAERS Safety Report 10631925 (Version 1)
Quarter: 2014Q4

REPORT INFORMATION
  Report Type: Spontaneous
  Country: US (occurrence: None)
  Receive Date: 20141203
  Receipt Date: 20141203
  Transmission Date: 20150529
  Serious: Yes (Other)
  Sender: FDA-Public Use
  Company Number: None

PATIENT
  Age: 33 Year
  Sex: Male

DRUGS (1)
  1. HUMIRA [Suspect]
     Active Substance: ADALIMUMAB
     Dosage: 40MG/0.8ML INJECTABLE EVERY WEEK
     Dates: start: 201305

REACTIONS (1)
  - Incorrect product storage [None]

NARRATIVE: CASE EVENT DATE: 20141201
